FAERS Safety Report 23378151 (Version 1)
Quarter: 2024Q1

REPORT INFORMATION
  Report Type: Spontaneous
  Country: FR (occurrence: FR)
  Receive Date: 20240108
  Receipt Date: 20240108
  Transmission Date: 20240410
  Serious: Yes (Hospitalization)
  Sender: FDA-Public Use
  Company Number: None

PATIENT
  Age: 78 Year
  Sex: Male

DRUGS (16)
  1. CLINDAMYCIN [Suspect]
     Active Substance: CLINDAMYCIN
     Indication: Eschar
     Dosage: 900 MG, 1X/DAY
     Route: 048
     Dates: start: 20230215, end: 20230303
  2. CIPROFLOXACIN HYDROCHLORIDE [Suspect]
     Active Substance: CIPROFLOXACIN HYDROCHLORIDE
     Indication: Eschar
     Dosage: 1 G, 1X/DAY
     Route: 048
     Dates: start: 20230215, end: 20230303
  3. LANSOPRAZOLE [Concomitant]
     Active Substance: LANSOPRAZOLE
  4. APIXABAN [Concomitant]
     Active Substance: APIXABAN
  5. POTASSIUM CHLORIDE [Concomitant]
     Active Substance: POTASSIUM CHLORIDE
  6. ASPIRIN [Concomitant]
     Active Substance: ASPIRIN
  7. ECONAZOLE [Concomitant]
     Active Substance: ECONAZOLE
  8. FOLIC ACID [Concomitant]
     Active Substance: FOLIC ACID
  9. METFORMIN HYDROCHLORIDE [Concomitant]
     Active Substance: METFORMIN HYDROCHLORIDE
  10. NOVORAPID [Concomitant]
     Active Substance: INSULIN ASPART
  11. FUROSEMIDE [Concomitant]
     Active Substance: FUROSEMIDE
  12. OXAZEPAM [Concomitant]
     Active Substance: OXAZEPAM
  13. LANTUS [Concomitant]
     Active Substance: INSULIN GLARGINE
  14. LITHIUM GLUCONATE [Concomitant]
     Active Substance: LITHIUM GLUCONATE
  15. LERCANIDIPINE HYDROCHLORIDE [Concomitant]
     Active Substance: LERCANIDIPINE HYDROCHLORIDE
  16. CETIRIZINE HYDROCHLORIDE [Concomitant]
     Active Substance: CETIRIZINE HYDROCHLORIDE

REACTIONS (3)
  - Purpura [Recovered/Resolved]
  - Diarrhoea [Recovered/Resolved]
  - Off label use [Unknown]

NARRATIVE: CASE EVENT DATE: 20230215
